FAERS Safety Report 18314035 (Version 3)
Quarter: 2020Q4

REPORT INFORMATION
  Report Type: Spontaneous
  Country: US (occurrence: US)
  Receive Date: 20200925
  Receipt Date: 20201101
  Transmission Date: 20210113
  Serious: Yes (Other)
  Sender: FDA-Public Use
  Company Number: US-009507513-2009USA008729

PATIENT
  Age: 18 Year
  Sex: Female
  Weight: 104.76 kg

DRUGS (1)
  1. NEXPLANON [Suspect]
     Active Substance: ETONOGESTREL
     Indication: CONTRACEPTION
     Dosage: 1 IMPLANT, IN RIGHT ARM
     Route: 059
     Dates: start: 201903, end: 20200824

REACTIONS (8)
  - Unintended pregnancy [Recovered/Resolved]
  - Device deployment issue [Recovered/Resolved]
  - Abortion spontaneous [Unknown]
  - Pain [Recovered/Resolved]
  - Complication associated with device [Recovered/Resolved]
  - Pregnancy with implant contraceptive [Recovered/Resolved]
  - Device issue [Recovered/Resolved]
  - Complication of device removal [Recovered/Resolved]

NARRATIVE: CASE EVENT DATE: 201903
